FAERS Safety Report 5623387-0 (Version None)
Quarter: 2008Q1

REPORT INFORMATION
  Report Type: 
  Country: None (occurrence: None)
  Receive Date: 20080212
  Receipt Date: 20080131
  Transmission Date: 20080703
  Serious: Yes (Other)
  Sender: FDA-Public Use
  Company Number: GB-PFIZER INC-2007103295

PATIENT
  Sex: Female

DRUGS (1)
  1. DETRUSITOL XL [Suspect]
     Route: 048

REACTIONS (1)
  - CONTUSION [None]
